FAERS Safety Report 7591786-6 (Version None)
Quarter: 2011Q2

REPORT INFORMATION
  Report Type: 
  Country: None (occurrence: None)
  Receive Date: 20110627
  Receipt Date: 20110616
  Transmission Date: 20111010
  Serious: Yes (Other)
  Sender: FDA-Public Use
  Company Number: DSA_46959_2011

PATIENT
  Sex: Male

DRUGS (2)
  1. IBUPROFEN [Concomitant]
  2. BUPROPION HYDROCHLORIDE [Suspect]
     Indication: PRODUCT USED FOR UNKNOWN INDICATION
     Dosage: (150 MG QD ORAL)
     Route: 048
     Dates: start: 20110401

REACTIONS (1)
  - AZOOSPERMIA [None]
